FAERS Safety Report 14110337 (Version 2)
Quarter: 2019Q2

REPORT INFORMATION
  Report Type: Spontaneous
  Country: US (occurrence: US)
  Receive Date: 20171020
  Receipt Date: 20190520
  Transmission Date: 20190711
  Serious: No
  Sender: FDA-Public Use
  Company Number: US-PFIZER INC-2016130788

PATIENT
  Age: 47 Year
  Sex: Female
  Weight: 82 kg

DRUGS (2)
  1. LYRICA [Suspect]
     Active Substance: PREGABALIN
     Indication: FIBROMYALGIA
     Dosage: 75 MG, DAILY (1 CAP DAILY)
     Route: 048
     Dates: start: 20151208, end: 201710
  2. LYRICA [Suspect]
     Active Substance: PREGABALIN
     Indication: COSTOCHONDRITIS
     Dosage: 75 MG, 3X/DAY
     Route: 048
     Dates: start: 20190510

REACTIONS (6)
  - Product use issue [Unknown]
  - Anxiety [Not Recovered/Not Resolved]
  - Withdrawal syndrome [Not Recovered/Not Resolved]
  - Mood altered [Not Recovered/Not Resolved]
  - Headache [Not Recovered/Not Resolved]
  - Off label use [Unknown]

NARRATIVE: CASE EVENT DATE: 20151208
